FAERS Safety Report 14544497 (Version 2)
Quarter: 2018Q2

REPORT INFORMATION
  Report Type: Spontaneous
  Country: US (occurrence: US)
  Receive Date: 20180217
  Receipt Date: 20180416
  Transmission Date: 20180711
  Serious: Yes (Death, Life-Threatening, Hospitalization)
  Sender: FDA-Public Use
  Company Number: US-SUN PHARMACEUTICAL INDUSTRIES LTD-2018US-162936

PATIENT
  Age: 51 Year
  Sex: Male

DRUGS (1)
  1. AMLODIPINE [Suspect]
     Active Substance: AMLODIPINE BESYLATE
     Indication: PRODUCT USED FOR UNKNOWN INDICATION
     Dosage: 50 DF, SINGLE
     Route: 065

REACTIONS (11)
  - Multiple organ dysfunction syndrome [Unknown]
  - Cardiac failure [Unknown]
  - Acidosis [Unknown]
  - Ventricular hypokinesia [Unknown]
  - Pulmonary oedema [Unknown]
  - Left ventricular dysfunction [Unknown]
  - Intentional self-injury [Unknown]
  - Intentional overdose [Fatal]
  - Suicide attempt [Unknown]
  - Peripheral ischaemia [Unknown]
  - Haemodynamic instability [Unknown]
